FAERS Safety Report 10911649 (Version 3)
Quarter: 2015Q2

REPORT INFORMATION
  Report Type: Report from Study
  Country: US (occurrence: None)
  Receive Date: 20150309
  Receipt Date: 20150415
  Transmission Date: 20150821
  Serious: Yes (Hospitalization)
  Sender: FDA-Public Use
  Company Number: US-MDCO-15-00108

PATIENT
  Age: 9 Year
  Sex: Female
  Weight: 31.6 kg

DRUGS (7)
  1. MOTRIN [Concomitant]
     Active Substance: IBUPROFEN
  2. ORITIVANCIN (ORITIVANCIN TRIAL) [Suspect]
     Active Substance: ORITAVANCIN
     Indication: PNEUMONIA
     Route: 042
     Dates: start: 20150130, end: 20150130
  3. ORITIVANCIN (ORITIVANCIN TRIAL) [Suspect]
     Active Substance: ORITAVANCIN
     Indication: EMPYEMA
     Route: 042
     Dates: start: 20150130, end: 20150130
  4. PEPCID [Concomitant]
     Active Substance: FAMOTIDINE
  5. AMOXICILLIN (AMOXICILLIN) [Suspect]
     Active Substance: AMOXICILLIN
     Indication: PNEUMONIA
     Route: 048
     Dates: start: 20150204, end: 20150221
  6. ZOFRAN (ONDANSETRON) [Concomitant]
  7. TYLENOL [Concomitant]
     Active Substance: ACETAMINOPHEN

REACTIONS (12)
  - Abdominal pain upper [None]
  - Dizziness [None]
  - Cough [None]
  - Clostridium difficile colitis [None]
  - Mean platelet volume decreased [None]
  - Protein total increased [None]
  - Vomiting [None]
  - C-reactive protein increased [None]
  - Red blood cell sedimentation rate increased [None]
  - Gait disturbance [None]
  - Pyrexia [None]
  - Headache [None]

NARRATIVE: CASE EVENT DATE: 20150221
